FAERS Safety Report 9774906 (Version 4)
Quarter: 2014Q1

REPORT INFORMATION
  Report Type: Spontaneous
  Country: CN (occurrence: CN)
  Receive Date: 20131220
  Receipt Date: 20140107
  Transmission Date: 20141002
  Serious: Yes (Other)
  Sender: FDA-Public Use
  Company Number: CN-PFIZER INC-2013363461

PATIENT
  Sex: Male

DRUGS (2)
  1. LIPITOR [Suspect]
     Indication: ARTERIOSCLEROSIS
     Dosage: UNK
     Route: 048
  2. CRESTOR [Suspect]
     Indication: ARTERIOSCLEROSIS
     Dosage: UNK
     Route: 048

REACTIONS (1)
  - Sick sinus syndrome [Recovered/Resolved]
